FAERS Safety Report 6285449-7 (Version None)
Quarter: 2009Q3

REPORT INFORMATION
  Report Type: 
  Country: None (occurrence: None)
  Receive Date: 20090727
  Receipt Date: 20090720
  Transmission Date: 20100115
  Serious: Yes (Other)
  Sender: FDA-Public Use
  Company Number: US-B.I. PHARMACEUTICALS,INC./RIDGEFIELD-2009-BP-08711BP

PATIENT

DRUGS (4)
  1. FLOMAX [Suspect]
  2. PLAVIX [Concomitant]
  3. STATINS [Concomitant]
  4. FINASTERIDE [Concomitant]

REACTIONS (5)
  - ADHESION [None]
  - DIVERTICULUM [None]
  - HERNIA [None]
  - IRRITABLE BOWEL SYNDROME [None]
  - PROSTATOMEGALY [None]
